FAERS Safety Report 15848830 (Version 3)
Quarter: 2021Q2

REPORT INFORMATION
  Report Type: Spontaneous
  Country: US (occurrence: US)
  Receive Date: 20190121
  Receipt Date: 20210609
  Transmission Date: 20210716
  Serious: No
  Sender: FDA-Public Use
  Company Number: US-PFIZER INC-2019024539

PATIENT
  Age: 40 Year
  Sex: Female

DRUGS (5)
  1. LYRICA [Suspect]
     Active Substance: PREGABALIN
     Dosage: 75 MG, 3X/DAY
  2. LYRICA [Suspect]
     Active Substance: PREGABALIN
     Dosage: UNK (2 DOSES)
  3. LYRICA [Suspect]
     Active Substance: PREGABALIN
     Dosage: 1 DF (SHOULD HAVE BEEN TAKING 2 DOSES BUT ONLY TOOK ONE CAPSULE)
  4. LYRICA [Suspect]
     Active Substance: PREGABALIN
     Dosage: UNK (TAKE MORE IF SHE HAD A FLARE UP)
  5. LYRICA [Suspect]
     Active Substance: PREGABALIN
     Dosage: UNK (DON^T TAKE IT 3 TIMES A DAY)

REACTIONS (4)
  - Pain [Not Recovered/Not Resolved]
  - Condition aggravated [Unknown]
  - Intentional product misuse [Unknown]
  - Somnolence [Unknown]
